FAERS Safety Report 4282601-7 (Version None)
Quarter: 2004Q1

REPORT INFORMATION
  Report Type: 
  Country: None (occurrence: None)
  Receive Date: 20040130
  Receipt Date: 20021205
  Transmission Date: 20041129
  Serious: No
  Sender: FDA-Public Use
  Company Number: US-BRISTOL-MYERS SQUIBB COMPANY-12130498

PATIENT
  Age: 58 Year
  Sex: Male
  Weight: 95 kg

DRUGS (4)
  1. SERZONE [Suspect]
     Indication: DEPRESSION
     Dosage: TAKES 100 MG- 1 IN THE MORNING AND 1 + 1/2 IN EVENING
     Route: 048
  2. ASPIRIN [Concomitant]
  3. ALLOPURINOL [Concomitant]
  4. COZAAR [Concomitant]

REACTIONS (4)
  - EYE PAIN [None]
  - FEELING ABNORMAL [None]
  - PAIN [None]
  - TINNITUS [None]
